FAERS Safety Report 5396833-8 (Version None)
Quarter: 2007Q3

REPORT INFORMATION
  Report Type: 
  Country: None (occurrence: None)
  Receive Date: 20070725
  Receipt Date: 20060818
  Transmission Date: 20080115
  Serious: No
  Sender: FDA-Public Use
  Company Number: US-AMGEN-KDL191245

PATIENT
  Sex: Male
  Weight: 72.2 kg

DRUGS (7)
  1. PROCRIT [Suspect]
     Indication: RENAL FAILURE CHRONIC
     Route: 058
     Dates: start: 20060804
  2. PLAVIX [Concomitant]
  3. ZOCOR [Concomitant]
  4. LASIX [Concomitant]
  5. ENALAPRIL MALEATE [Concomitant]
  6. DIGOXIN [Concomitant]
  7. COREG [Concomitant]

REACTIONS (1)
  - POLLAKIURIA [None]
